FAERS Safety Report 18213879 (Version 1)
Quarter: 2020Q3

REPORT INFORMATION
  Report Type: Spontaneous
  Country: US (occurrence: US)
  Receive Date: 20200831
  Receipt Date: 20200831
  Transmission Date: 20201103
  Serious: Yes (Hospitalization, Other)
  Sender: FDA-Public Use
  Company Number: US-PURDUE-USA-2020-0163752

PATIENT

DRUGS (3)
  1. OXYCONTIN [Suspect]
     Active Substance: OXYCODONE HYDROCHLORIDE
     Indication: PRODUCT USED FOR UNKNOWN INDICATION
     Dosage: UNK
     Route: 048
  2. HEROIN [Suspect]
     Active Substance: DIAMORPHINE
     Indication: PRODUCT USED FOR UNKNOWN INDICATION
     Dosage: UNK
     Route: 042
  3. PERCOCET [Suspect]
     Active Substance: ACETAMINOPHEN\OXYCODONE HYDROCHLORIDE
     Indication: PRODUCT USED FOR UNKNOWN INDICATION
     Dosage: UNK
     Route: 065

REACTIONS (11)
  - Septic shock [Unknown]
  - Drug dependence [Unknown]
  - Drug abuse [Unknown]
  - Scar [Unknown]
  - Illness [Unknown]
  - Emotional distress [Unknown]
  - Immune system disorder [Unknown]
  - Coma [Unknown]
  - Withdrawal syndrome [Unknown]
  - Transfusion [Unknown]
  - Pain [Unknown]

NARRATIVE: CASE EVENT DATE: 201505
